FAERS Safety Report 14519019 (Version 7)
Quarter: 2020Q3

REPORT INFORMATION
  Report Type: Spontaneous
  Country: US (occurrence: US)
  Receive Date: 20180212
  Receipt Date: 20200916
  Transmission Date: 20201102
  Serious: Yes (Other)
  Sender: FDA-Public Use
  Company Number: US-PFIZER INC-2018059336

PATIENT
  Age: 73 Year
  Sex: Female
  Weight: 45.36 kg

DRUGS (5)
  1. LYRICA [Suspect]
     Active Substance: PREGABALIN
     Indication: PAIN
  2. LYRICA [Suspect]
     Active Substance: PREGABALIN
     Indication: LUPUS-LIKE SYNDROME
  3. LYRICA [Suspect]
     Active Substance: PREGABALIN
     Indication: ARTHRITIS
  4. ESTRACE [Concomitant]
     Active Substance: ESTRADIOL
     Dosage: 1 MG, UNK
     Dates: start: 1999
  5. LYRICA [Suspect]
     Active Substance: PREGABALIN
     Indication: FIBROMYALGIA
     Dosage: 25 MG, 3X/DAY [25MG THREE TIMES A DAY BY MOUTH]
     Route: 048
     Dates: start: 2015

REACTIONS (8)
  - Renal failure [Unknown]
  - Condition aggravated [Not Recovered/Not Resolved]
  - Nausea [Recovered/Resolved]
  - Intentional product use issue [Unknown]
  - Congenital cystic kidney disease [Not Recovered/Not Resolved]
  - Expired product administered [Unknown]
  - Renal disorder [Not Recovered/Not Resolved]
  - Illness [Recovered/Resolved]
